FAERS Safety Report 24622740 (Version 2)
Quarter: 2025Q4

REPORT INFORMATION
  Report Type: Other
  Country: CA (occurrence: CA)
  Receive Date: 20241115
  Receipt Date: 20251104
  Transmission Date: 20260117
  Serious: Yes (Other)
  Sender: APOTEX
  Company Number: CA-APOTEX-2024AP017569

PATIENT
  Age: 54 Year
  Sex: Female

DRUGS (8)
  1. DIPHENHYDRAMINE [Suspect]
     Active Substance: DIPHENHYDRAMINE
     Indication: Premedication
     Dosage: 50 MILLIGRAM
     Route: 048
  2. DIPHENHYDRAMINE [Suspect]
     Active Substance: DIPHENHYDRAMINE
     Dosage: 25 MILLIGRAM
     Route: 048
  3. DIPHENHYDRAMINE HYDROCHLORIDE [Suspect]
     Active Substance: DIPHENHYDRAMINE HYDROCHLORIDE
     Indication: Premedication
     Dosage: UNK
     Route: 042
  4. OCRELIZUMAB [Suspect]
     Active Substance: OCRELIZUMAB
     Indication: Relapsing-remitting multiple sclerosis
     Dosage: 600 MILLIGRAM, ONCE EVERY 6 MONTHS
     Route: 042
  5. OCRELIZUMAB [Suspect]
     Active Substance: OCRELIZUMAB
     Dosage: 300 MILLIGRAM, Q.O.WK.
     Route: 042
  6. OCRELIZUMAB [Suspect]
     Active Substance: OCRELIZUMAB
     Dosage: UNK
     Route: 042
  7. ACETAMINOPHEN [Concomitant]
     Active Substance: ACETAMINOPHEN
     Indication: Premedication
     Dosage: 1000 MILLIGRAM
     Route: 048
  8. METHYLPREDNISOLONE [Concomitant]
     Active Substance: METHYLPREDNISOLONE
     Indication: Premedication
     Dosage: 100 MILLIGRAM
     Route: 065

REACTIONS (5)
  - Bone disorder [Not Recovered/Not Resolved]
  - Infusion related reaction [Not Recovered/Not Resolved]
  - Tooth fracture [Not Recovered/Not Resolved]
  - Vascular calcification [Not Recovered/Not Resolved]
  - Influenza like illness [Not Recovered/Not Resolved]
